FAERS Safety Report 8580945 (Version 5)
Quarter: 2013Q3

REPORT INFORMATION
  Report Type: Report from Study
  Country: US (occurrence: US)
  Receive Date: 20120525
  Receipt Date: 20130705
  Transmission Date: 20140515
  Serious: Yes (Hospitalization, Other)
  Sender: FDA-Public Use
  Company Number: PHEH2012US010697

PATIENT
  Age: 55 Year
  Sex: Female
  Weight: 112.2 kg

DRUGS (8)
  1. TASIGNA [Suspect]
     Indication: CHRONIC MYELOID LEUKAEMIA
     Dosage: UNK
     Route: 048
     Dates: start: 20110501
  2. TASIGNA [Suspect]
     Dosage: 150 MG BID
     Route: 048
     Dates: start: 20130513
  3. AMBIEN [Concomitant]
     Dosage: 5 MG, UNK
  4. LASIX [Concomitant]
     Dosage: 40 MG, UNK
  5. LISINOPRIL [Concomitant]
     Dosage: 20 MG, UNK
  6. SIMVASTATIN [Concomitant]
     Dosage: 40 MG, UNK
  7. PRILOSEC [Concomitant]
     Dosage: 40 MG, UNK
  8. ESTRADIOL [Concomitant]

REACTIONS (11)
  - Haemorrhoids [Unknown]
  - Gastrointestinal haemorrhage [Not Recovered/Not Resolved]
  - Diverticulum [Unknown]
  - Abdominal pain upper [Not Recovered/Not Resolved]
  - Abdominal pain [Recovering/Resolving]
  - Haematuria [Not Recovered/Not Resolved]
  - Fluid retention [Unknown]
  - Headache [Unknown]
  - Rash [Not Recovered/Not Resolved]
  - Alopecia [Not Recovered/Not Resolved]
  - Weight increased [Not Recovered/Not Resolved]
